FAERS Safety Report 11502516 (Version 3)
Quarter: 2017Q3

REPORT INFORMATION
  Report Type: Spontaneous
  Country: US (occurrence: US)
  Receive Date: 20150914
  Receipt Date: 20170914
  Transmission Date: 20171127
  Serious: No
  Sender: FDA-Public Use
  Company Number: US-ASTELLAS-2015US022028

PATIENT
  Age: 82 Year
  Sex: Male

DRUGS (2)
  1. XTANDI [Suspect]
     Active Substance: ENZALUTAMIDE
     Indication: PROSTATE CANCER
     Dosage: 160 MG (4 CAPSULES), ONCE DAILY
     Route: 048
     Dates: start: 20150415, end: 20160909
  2. XTANDI [Suspect]
     Active Substance: ENZALUTAMIDE
     Dosage: 160 MG (4 CAPSULES), ONCE DAILY
     Route: 048
     Dates: start: 20161114

REACTIONS (10)
  - Diarrhoea [Recovered/Resolved]
  - Fatigue [Recovering/Resolving]
  - Back pain [Recovered/Resolved]
  - Nasal odour [Not Recovered/Not Resolved]
  - Constipation [Recovering/Resolving]
  - Diarrhoea [Recovered/Resolved]
  - Hot flush [Not Recovered/Not Resolved]
  - Diarrhoea [Recovered/Resolved]
  - Diarrhoea [Recovered/Resolved]
  - Drug dose omission [Unknown]

NARRATIVE: CASE EVENT DATE: 201606
